FAERS Safety Report 7844928-9 (Version None)
Quarter: 2011Q4

REPORT INFORMATION
  Report Type: 
  Country: None (occurrence: None)
  Receive Date: 20111025
  Receipt Date: 20111013
  Transmission Date: 20120403
  Serious: Yes (Other)
  Sender: FDA-Public Use
  Company Number: US-BAYER-2011-027486

PATIENT
  Age: 29 Year
  Sex: Female

DRUGS (2)
  1. ALBUTEROL [Concomitant]
     Dosage: UNK
     Dates: start: 19870101
  2. YASMIN [Suspect]
     Dosage: UNK
     Dates: start: 20051201, end: 20060401

REACTIONS (8)
  - ANXIETY [None]
  - PAIN [None]
  - INJURY [None]
  - OVARIAN CYST [None]
  - GALLBLADDER DISORDER [None]
  - GENERAL PHYSICAL HEALTH DETERIORATION [None]
  - ANHEDONIA [None]
  - EMOTIONAL DISTRESS [None]
